FAERS Safety Report 6927764-7 (Version None)
Quarter: 2010Q3

REPORT INFORMATION
  Report Type: 
  Country: None (occurrence: None)
  Receive Date: 20100817
  Receipt Date: 20100806
  Transmission Date: 20110219
  Serious: Yes (Death)
  Sender: FDA-Public Use
  Company Number: JP-SANOFI-AVENTIS-2010SA046527

PATIENT
  Age: 61 Year
  Sex: Male

DRUGS (6)
  1. OXALIPLATIN [Suspect]
     Indication: RECTAL CANCER
     Route: 041
     Dates: start: 20100528, end: 20100528
  2. OXALIPLATIN [Suspect]
     Route: 041
     Dates: start: 20100709, end: 20100709
  3. XELODA [Suspect]
     Indication: RECTAL CANCER
     Route: 048
     Dates: start: 20100528
  4. XELODA [Suspect]
     Route: 048
     Dates: end: 20100722
  5. AVASTIN [Suspect]
     Indication: RECTAL CANCER
     Route: 041
     Dates: start: 20100618, end: 20100618
  6. AVASTIN [Suspect]
     Route: 041
     Dates: start: 20100709, end: 20100709

REACTIONS (1)
  - GASTROINTESTINAL HAEMORRHAGE [None]
